FAERS Safety Report 16564092 (Version 5)
Quarter: 2019Q4

REPORT INFORMATION
  Report Type: Report from Study
  Country: US (occurrence: US)
  Receive Date: 20190712
  Receipt Date: 20191020
  Transmission Date: 20200122
  Serious: Yes (Hospitalization, Other)
  Sender: FDA-Public Use
  Company Number: PHEH2019US028668

PATIENT
  Sex: Female

DRUGS (1)
  1. KISQALI [Suspect]
     Active Substance: RIBOCICLIB
     Indication: BREAST NEOPLASM
     Dosage: 600 MG, QD, (TAKING 3 X DAILY)
     Route: 048
     Dates: start: 201906, end: 20190904

REACTIONS (8)
  - Dizziness [Unknown]
  - Ascites [Unknown]
  - Sepsis [Unknown]
  - Vomiting [Recovering/Resolving]
  - White blood cell count decreased [Unknown]
  - Cough [Unknown]
  - Pyrexia [Unknown]
  - Malaise [Unknown]
